FAERS Safety Report 5749301-5 (Version None)
Quarter: 2008Q2

REPORT INFORMATION
  Report Type: 
  Country: None (occurrence: None)
  Receive Date: 20080527
  Receipt Date: 20080527
  Transmission Date: 20081010
  Serious: Yes (Hospitalization)
  Sender: FDA-Public Use
  Company Number: A0729582A

PATIENT
  Age: 65 Year
  Sex: Male

DRUGS (15)
  1. ALLI [Suspect]
     Indication: WEIGHT LOSS DIET
     Route: 048
     Dates: start: 20070101
  2. FISH OIL [Concomitant]
  3. ASPIRIN [Concomitant]
  4. SIMVASTATIN [Concomitant]
  5. WARFARIN SODIUM [Concomitant]
  6. COUMADIN [Concomitant]
  7. DILTIAZEM [Concomitant]
  8. SPIRONOLACTONE [Concomitant]
  9. HYDROXYZINE PAMOATE [Concomitant]
  10. LORATADINE [Concomitant]
  11. AMIODARONE [Concomitant]
  12. FUROSEMIDE [Concomitant]
  13. LISINOPRIL [Concomitant]
  14. LEVOTHYROXINE SODIUM [Concomitant]
     Dosage: .025MG PER DAY
  15. AMLODIPINE BESYLATE [Concomitant]

REACTIONS (6)
  - ANOREXIA [None]
  - DIARRHOEA [None]
  - HEART RATE INCREASED [None]
  - PNEUMONIA [None]
  - RECTAL DISCHARGE [None]
  - WEIGHT INCREASED [None]
